FAERS Safety Report 7222846-7 (Version None)
Quarter: 2011Q1

REPORT INFORMATION
  Report Type: 
  Country: None (occurrence: None)
  Receive Date: 20110106
  Receipt Date: 20110106
  Transmission Date: 20110831
  Serious: Yes (Disabling)
  Sender: FDA-Public Use
  Company Number: None

PATIENT
  Age: 39 Year
  Sex: Female
  Weight: 108.8633 kg

DRUGS (1)
  1. LOESTRIN 1.5/30 [Suspect]
     Indication: MENORRHAGIA
     Dosage: MG'S ONCE DAILY ORAL (047)
     Route: 048
     Dates: start: 20100801, end: 20101001

REACTIONS (1)
  - BLOOD PRESSURE INCREASED [None]
